FAERS Safety Report 21086388 (Version 2)
Quarter: 2022Q3

REPORT INFORMATION
  Report Type: Report from Study
  Country: US (occurrence: None)
  Receive Date: 20220715
  Receipt Date: 20220811
  Transmission Date: 20221027
  Serious: Yes (Disabling, Other)
  Sender: FDA-Public Use
  Company Number: US-ROCHE-3032074

PATIENT
  Age: 64 Year
  Sex: Male
  Weight: 103.73 kg

DRUGS (6)
  1. ATEZOLIZUMAB [Suspect]
     Active Substance: ATEZOLIZUMAB
     Indication: Colon cancer stage III
     Dosage: PATIENTS RECEIVE ATEZOLIZUMAB IV OVER 30-60 MINUTES ON DAY 1?DATE OF LAST DOSE OF ATEZOLIZUMAB ADMIN
     Route: 041
     Dates: start: 20210616
  2. FLUOROURACIL [Suspect]
     Active Substance: FLUOROURACIL
     Indication: Colon cancer stage III
     Dosage: ON DAY 1 FOLLOWED BY 2400MG/M2 IV OVER 46 HOURS DAYS 1-3?DATE OF LAST DOSE OF 5-FLUOROURACIL ADMINIS
     Route: 040
  3. LEUCOVORIN CALCIUM [Suspect]
     Active Substance: LEUCOVORIN CALCIUM
     Indication: Colon cancer stage III
     Dosage: OVER 2 HOURS ON DAY 1?DATE OF LAST DOSE OF LEUCOVORIN CALCIUM ADMINISTERED: 17/NOV/2021
     Route: 042
  4. OXALIPLATIN [Suspect]
     Active Substance: OXALIPLATIN
     Indication: Colon cancer stage III
     Dosage: OVER 2 HOURS ON DAY 1?DATE OF LAST DOSE OF OXALIPLATIN ADMINISTERED: 17/NOV/2021
     Route: 042
  5. PREGABALIN [Concomitant]
     Active Substance: PREGABALIN
  6. CYMBALTA [Concomitant]
     Active Substance: DULOXETINE HYDROCHLORIDE

REACTIONS (2)
  - Paraesthesia [Unknown]
  - Peripheral sensory neuropathy [Unknown]

NARRATIVE: CASE EVENT DATE: 20211229
